FAERS Safety Report 8037286-0 (Version None)
Quarter: 2012Q1

REPORT INFORMATION
  Report Type: 
  Country: None (occurrence: None)
  Receive Date: 20120105
  Receipt Date: 20111220
  Transmission Date: 20120608
  Serious: Yes (Hospitalization)
  Sender: FDA-Public Use
  Company Number: ACO_28571_2011

PATIENT
  Age: 62 Year
  Sex: Male
  Weight: 67 kg

DRUGS (17)
  1. LOVENOX [Concomitant]
  2. CRESTOR [Concomitant]
  3. METFORMIN HCL [Concomitant]
  4. DILTIAZEM [Concomitant]
  5. HUMULIN (INSULIN HUMAN INJECTION, ISOPHANE) [Concomitant]
  6. PLAVIX [Concomitant]
  7. BACLOFEN [Concomitant]
  8. AMANTADINE HCL [Concomitant]
  9. CYCLOBENZAPRINE [Concomitant]
  10. DIFLUNISAL [Concomitant]
  11. NITROGLYCERIN [Concomitant]
  12. FAMPRIDINE-SR (FAMPRIDINE) TABLET [Suspect]
     Indication: MULTIPLE SCLEROSIS
     Dates: start: 20060622
  13. RAMIPRIL [Concomitant]
  14. ASPIRIN [Concomitant]
  15. AVONEX [Concomitant]
  16. DITROPAN [Concomitant]
  17. HYDROCHLOROTHIAZIDE [Concomitant]

REACTIONS (10)
  - ANGINA UNSTABLE [None]
  - CORONARY ARTERY STENOSIS [None]
  - FALL [None]
  - ELECTROCARDIOGRAM ST SEGMENT ABNORMAL [None]
  - MULTIPLE SCLEROSIS RELAPSE [None]
  - VENTRICULAR HYPOKINESIA [None]
  - CONDUCTION DISORDER [None]
  - HAEMOGLOBIN DECREASED [None]
  - CHEST DISCOMFORT [None]
  - IN-STENT CORONARY ARTERY RESTENOSIS [None]
